FAERS Safety Report 9806135 (Version 2)
Quarter: 2014Q1

REPORT INFORMATION
  Report Type: Report from Study
  Country: US (occurrence: US)
  Receive Date: 20140109
  Receipt Date: 20140120
  Transmission Date: 20141002
  Serious: Yes (Death)
  Sender: FDA-Public Use
  Company Number: US-ACTELION-A-NJ2013-93170

PATIENT
  Age: 82 Year
  Sex: Male

DRUGS (2)
  1. TRACLEER [Suspect]
     Indication: PULMONARY HYPERTENSION
     Dosage: UNK, BID
     Route: 048
     Dates: start: 20101008, end: 20131218
  2. ADCIRCA [Concomitant]

REACTIONS (2)
  - Respiratory failure [Fatal]
  - Hypoxia [Fatal]
